FAERS Safety Report 9998333 (Version 1)
Quarter: 2014Q1

REPORT INFORMATION
  Report Type: Spontaneous
  Country: CN (occurrence: CN)
  Receive Date: 20140312
  Receipt Date: 20140312
  Transmission Date: 20141002
  Serious: Yes (Death, Hospitalization)
  Sender: FDA-Public Use
  Company Number: PHHY2014CN026497

PATIENT
  Age: 47 Year
  Sex: Female

DRUGS (1)
  1. PREDNISONE [Suspect]
     Indication: IMMUNOSUPPRESSION
     Dosage: 40 MG, PER DAY

REACTIONS (11)
  - Brain death [Fatal]
  - Listeriosis [Fatal]
  - Pyrexia [Fatal]
  - Dizziness [Fatal]
  - Dysphagia [Fatal]
  - Cyanosis [Fatal]
  - Coma [Unknown]
  - Brain stem stroke [Unknown]
  - Meningitis [Unknown]
  - Pneumonia staphylococcal [Unknown]
  - Enterobacter pneumonia [Unknown]
